FAERS Safety Report 4389466-3 (Version None)
Quarter: 2004Q2

REPORT INFORMATION
  Report Type: 
  Country: None (occurrence: None)
  Receive Date: 20040628
  Receipt Date: 20040127
  Transmission Date: 20050107
  Serious: Yes (Other)
  Sender: FDA-Public Use
  Company Number: CHPA2004US00502

PATIENT
  Age: 38 Year
  Sex: Female
  Weight: 54.4 kg

DRUGS (2)
  1. NICOTINE [Suspect]
     Indication: SMOKING CESSATION THERAPY
     Dosage: 1/2 OF THE 21MG PATCH, TRANSDERMAL
     Route: 062
     Dates: start: 20040108, end: 20040116
  2. WALMART/EQUATE STEP 1 21MG (NCH) (NICOTINE) [Suspect]
     Indication: SMOKING CESSATION THERAPY
     Dosage: 21 MG, QD, TRANSDERMAL
     Route: 062
     Dates: start: 20040107, end: 20040108

REACTIONS (5)
  - ECONOMIC PROBLEM [None]
  - HYPOTENSION [None]
  - INSOMNIA [None]
  - MEDICATION ERROR [None]
  - SYNCOPE [None]
